FAERS Safety Report 4394761-8 (Version None)
Quarter: 2004Q3

REPORT INFORMATION
  Report Type: 
  Country: None (occurrence: None)
  Receive Date: 20040706
  Receipt Date: 20040622
  Transmission Date: 20050211
  Serious: Yes (Hospitalization, Other)
  Sender: FDA-Public Use
  Company Number: HQWYE547222JUN04

PATIENT
  Age: 86 Year
  Sex: Female

DRUGS (9)
  1. EUPANTOL (PANTOPRAZOLE, INJECTION) [Suspect]
     Dosage: 40 MG  1X PER 1 DAY
     Route: 042
     Dates: start: 20031201, end: 20040117
  2. AMBISOME [Suspect]
     Dosage: ONE DOSE FORM (FREQUENCY UNKNOWN)
     Dates: end: 20040109
  3. CIFLOX (CIPROFLOXACIN, ) [Suspect]
     Dosage: 400 MG 2X PER 1 DAY
     Route: 048
     Dates: start: 20040107
  4. FORTUM (CEFTAZIDIME PENTAHYDRATE, ) [Suspect]
     Dosage: 2 G 1X PER 1 DAY
     Route: 042
     Dates: start: 20040107, end: 20040117
  5. POLARAMINE [Suspect]
     Dosage: 5 MG 2X PER 1 DAY
     Route: 042
     Dates: start: 20031210, end: 20040117
  6. VANCOMYCIN [Suspect]
     Dosage: ONE DOSE FORM (FREQUENCY UNKNOWN)
     Dates: end: 20040109
  7. PARACETAMOL (PARACETAMOL) [Concomitant]
  8. VITAMIN K1 [Concomitant]
  9. FRAGMIN [Concomitant]

REACTIONS (7)
  - CANDIDA SEPSIS [None]
  - CULTURE URINE POSITIVE [None]
  - ENTEROCOCCAL SEPSIS [None]
  - NEUTROPENIA [None]
  - PSEUDOMONAS INFECTION [None]
  - STAPHYLOCOCCAL SEPSIS [None]
  - THROMBOCYTOPENIA [None]
